FAERS Safety Report 4680896-9 (Version None)
Quarter: 2005Q2

REPORT INFORMATION
  Report Type: 
  Country: None (occurrence: None)
  Receive Date: 20050603
  Receipt Date: 20040723
  Transmission Date: 20051028
  Serious: Yes (Death)
  Sender: FDA-Public Use
  Company Number: 200415587US

PATIENT
  Sex: Female
  Weight: 204.5 kg

DRUGS (37)
  1. LOVENOX [Suspect]
     Indication: DISSEMINATED INTRAVASCULAR COAGULATION
     Route: 058
     Dates: start: 20031025, end: 20031103
  2. MORPHINE [Suspect]
  3. COUMADIN [Suspect]
     Dosage: DOSE: UNK
  4. ANALGESICS [Concomitant]
     Dosage: DOSE: UNK
  5. SKELAXIN [Concomitant]
     Indication: MYALGIA
     Route: 048
  6. VISTARIL [Concomitant]
     Indication: NAUSEA
     Dosage: DOSE: 25/50
     Route: 048
     Dates: start: 20030101
  7. ROCEPHIN [Concomitant]
     Route: 048
  8. NYSTATIN [Concomitant]
     Indication: RASH
     Dosage: DOSE: UNK
     Route: 051
  9. FERROUS SULFATE [Concomitant]
     Route: 048
     Dates: start: 20031010
  10. DIFLUCAN [Concomitant]
     Indication: FUNGAL INFECTION
     Dosage: DOSE: UNK
     Dates: start: 20041027, end: 20041031
  11. SYNERCID [Concomitant]
     Dosage: DOSE: UNK
  12. HYDROCODONE [Concomitant]
     Dosage: DOSE: 5/500
     Route: 048
     Dates: start: 20031007, end: 20031021
  13. SLOW-FE [Concomitant]
     Indication: IRON DEFICIENCY ANAEMIA
     Route: 048
     Dates: start: 20020801, end: 20031102
  14. PROVERA [Concomitant]
     Indication: METRORRHAGIA
     Route: 048
     Dates: start: 20030903, end: 20031003
  15. ZOLOFT [Concomitant]
     Indication: DEPRESSION
     Route: 048
     Dates: end: 20030801
  16. LASIX [Concomitant]
     Indication: FLUID RETENTION
     Route: 048
     Dates: end: 20030801
  17. TEQUIN [Concomitant]
     Route: 048
     Dates: start: 20031007, end: 20031024
  18. VICODIN [Concomitant]
     Dosage: DOSE: UNK
     Route: 048
  19. NUBAIN [Concomitant]
     Indication: PAIN
     Route: 042
  20. PEPCID [Concomitant]
     Route: 048
     Dates: start: 20031007
  21. AMBIEN [Concomitant]
     Indication: INSOMNIA
     Route: 048
     Dates: start: 20031007, end: 20031021
  22. KEFLEX [Concomitant]
     Route: 048
  23. LORCET-HD [Concomitant]
     Dosage: DOSE: UNK
     Route: 048
  24. BACTROBAN [Concomitant]
     Dosage: DOSE: UNK
     Route: 061
  25. PHENTERMINE [Concomitant]
  26. LOTRISONE [Concomitant]
     Dosage: DOSE: UNK
  27. MUSCLE RELAXANTS [Concomitant]
     Dosage: DOSE: UNK
  28. DOCUSATE SODIUM [Concomitant]
     Route: 048
     Dates: start: 20031011
  29. CLINDAMYCIN HCL [Concomitant]
     Route: 048
     Dates: start: 20031014, end: 20031028
  30. ZOSYN [Concomitant]
     Route: 042
     Dates: start: 20031015, end: 20031022
  31. NALBUPHINE [Concomitant]
     Indication: PAIN
     Dosage: DOSE: 5/0.5; DOSE UNIT: MILLIGRAM PER MILLILITRE
     Route: 042
     Dates: start: 20031007, end: 20031021
  32. TYLENOL (CAPLET) [Concomitant]
     Route: 048
     Dates: start: 20031007
  33. PROMETHAZINE [Concomitant]
     Indication: NAUSEA
     Route: 042
     Dates: start: 20031008
  34. MAALOX PLUS [Concomitant]
     Indication: DYSPEPSIA
     Route: 048
     Dates: start: 20031008
  35. HYDROXYZINE [Concomitant]
     Indication: NAUSEA
     Route: 048
     Dates: start: 20031013
  36. VITAMIN K1 [Concomitant]
     Route: 058
     Dates: start: 20041011, end: 20041013
  37. HEPARIN [Concomitant]
     Indication: PROPHYLAXIS
     Dosage: DOSE UNIT: UNITS
     Route: 058
     Dates: start: 20031016, end: 20031023

REACTIONS (28)
  - ABSCESS [None]
  - ACINETOBACTER INFECTION [None]
  - ACUTE RESPIRATORY DISTRESS SYNDROME [None]
  - APNOEA [None]
  - CARDIO-RESPIRATORY ARREST [None]
  - CONFUSIONAL STATE [None]
  - CULTURE URINE POSITIVE [None]
  - CULTURE WOUND POSITIVE [None]
  - DISSEMINATED INTRAVASCULAR COAGULATION [None]
  - ELECTROCARDIOGRAM ABNORMAL [None]
  - FIBRINOLYSIS INCREASED [None]
  - HYPOXIA [None]
  - LEUKOCYTOSIS [None]
  - METASTATIC NEOPLASM [None]
  - NAUSEA [None]
  - OXYGEN SATURATION DECREASED [None]
  - PLATELET COUNT DECREASED [None]
  - PNEUMONIA [None]
  - PYREXIA [None]
  - SEPSIS [None]
  - SINUS TACHYCARDIA [None]
  - SQUAMOUS CELL CARCINOMA [None]
  - STREPTOCOCCAL INFECTION [None]
  - SUPRAVENTRICULAR EXTRASYSTOLES [None]
  - THROMBOCYTOPENIA [None]
  - VENTRICULAR EXTRASYSTOLES [None]
  - VOMITING [None]
  - WOUND SECRETION [None]
